FAERS Safety Report 5384303-2 (Version None)
Quarter: 2007Q3

REPORT INFORMATION
  Report Type: 
  Country: None (occurrence: None)
  Receive Date: 20070711
  Receipt Date: 20060810
  Transmission Date: 20080115
  Serious: No
  Sender: FDA-Public Use
  Company Number: US-AMGEN-KDL189538

PATIENT
  Sex: Female

DRUGS (2)
  1. KINERET [Suspect]
     Indication: ARTHRITIS
     Route: 058
     Dates: start: 20060101
  2. PLAQUENIL [Concomitant]

REACTIONS (1)
  - MENSTRUATION IRREGULAR [None]
